FAERS Safety Report 6349518-5 (Version None)
Quarter: 2009Q3

REPORT INFORMATION
  Report Type: 
  Country: None (occurrence: None)
  Receive Date: 20090911
  Receipt Date: 20090902
  Transmission Date: 20100115
  Serious: Yes (Other)
  Sender: FDA-Public Use
  Company Number: US-PFIZER INC-2009265445

PATIENT
  Sex: Female
  Weight: 63.502 kg

DRUGS (1)
  1. CELEBREX [Suspect]
     Indication: SWELLING
     Dosage: UNK
     Route: 048
     Dates: start: 20030101

REACTIONS (2)
  - DIARRHOEA HAEMORRHAGIC [None]
  - DRUG INEFFECTIVE [None]
